FAERS Safety Report 5096464-3 (Version None)
Quarter: 2006Q3

REPORT INFORMATION
  Report Type: 
  Country: None (occurrence: None)
  Receive Date: 20060905
  Receipt Date: 20060802
  Transmission Date: 20061208
  Serious: Yes (Life-Threatening, Hospitalization)
  Sender: FDA-Public Use
  Company Number: US-SANOFI-SYNTHELABO-F01200601784

PATIENT
  Sex: Female

DRUGS (5)
  1. ERLOTINIB [Suspect]
     Route: 048
     Dates: start: 20060502, end: 20060619
  2. AVASTIN [Suspect]
     Dosage: 5MG/KG 2X PER 28 DAY
     Route: 042
     Dates: start: 20060621, end: 20060621
  3. FOLINIC ACID [Suspect]
     Dosage: 400MG/M2 4X PER 28 DAY
     Route: 042
     Dates: start: 20060621, end: 20060622
  4. FLUOROURACIL [Suspect]
     Dosage: 400MG/M2 FOLLOWED BY 600MG/M2 DAYS 1,2,15, AND 16 EVERY 28 DAYS
     Route: 042
     Dates: start: 20060621, end: 20060622
  5. OXALIPLATIN [Suspect]
     Indication: COLORECTAL CANCER
     Dosage: 85 MG/M2 2X PER 28 DAY
     Route: 041
     Dates: start: 20060621, end: 20060621

REACTIONS (3)
  - ARRHYTHMIA [None]
  - ARRHYTHMIA SUPRAVENTRICULAR [None]
  - FEBRILE NEUTROPENIA [None]
